FAERS Safety Report 12079327 (Version 1)
Quarter: 2016Q1

REPORT INFORMATION
  Report Type: Spontaneous
  Country: PE (occurrence: PE)
  Receive Date: 20160216
  Receipt Date: 20160216
  Transmission Date: 20160526
  Serious: Yes (Death)
  Sender: FDA-Public Use
  Company Number: PE-NOVOPROD-479583

PATIENT
  Age: 61 Year
  Sex: Female

DRUGS (1)
  1. LEVEMIR [Suspect]
     Active Substance: INSULIN DETEMIR
     Indication: DIABETES MELLITUS
     Dosage: 20 IU, QD
     Route: 058
     Dates: start: 201509

REACTIONS (3)
  - Cardiac arrest [Fatal]
  - Hyperglycaemia [Fatal]
  - Hypertension [Fatal]

NARRATIVE: CASE EVENT DATE: 20160125
